FAERS Safety Report 9178365 (Version 1)
Quarter: 2013Q1

REPORT INFORMATION
  Report Type: Spontaneous
  Country: US (occurrence: US)
  Receive Date: 20130321
  Receipt Date: 20130321
  Transmission Date: 20140127
  Serious: Yes (Other)
  Sender: FDA-Public Use
  Company Number: US-BAYER-2013-033228

PATIENT
  Age: 19 Year
  Sex: Female
  Weight: 91.16 kg

DRUGS (2)
  1. OCELLA [Suspect]
  2. ALDARA [Concomitant]
     Route: 061

REACTIONS (2)
  - Pulmonary embolism [None]
  - Cholelithiasis [None]
